FAERS Safety Report 13314358 (Version 1)
Quarter: 2017Q1

REPORT INFORMATION
  Report Type: Spontaneous
  Country: US (occurrence: US)
  Receive Date: 20170309
  Receipt Date: 20170309
  Transmission Date: 20170428
  Serious: Yes (Other)
  Sender: FDA-Public Use
  Company Number: US-AMGEN-USASP2017033693

PATIENT
  Age: 60 Year
  Sex: Female

DRUGS (1)
  1. REPATHA [Suspect]
     Active Substance: EVOLOCUMAB
     Indication: PRODUCT USED FOR UNKNOWN INDICATION
     Dosage: UNK
     Route: 065

REACTIONS (8)
  - Headache [Unknown]
  - Cataract operation [Unknown]
  - Lower limb fracture [Unknown]
  - Gait disturbance [Unknown]
  - Umbilical hernia [Unknown]
  - Neck pain [Unknown]
  - Fall [Unknown]
  - Tendonitis [Unknown]

NARRATIVE: CASE EVENT DATE: 201602
